FAERS Safety Report 7249515-1 (Version None)
Quarter: 2011Q1

REPORT INFORMATION
  Report Type: 
  Country: None (occurrence: None)
  Receive Date: 20110128
  Receipt Date: 20110115
  Transmission Date: 20110831
  Serious: Yes (Death, Other)
  Sender: FDA-Public Use
  Company Number: JP-PAR PHARMACEUTICAL, INC-2011SCPR002636

PATIENT
  Age: 67 Year
  Sex: Male

DRUGS (4)
  1. BORTEZOMIB [Suspect]
     Indication: MULTIPLE MYELOMA
     Dosage: 1.3 MG/M2 ON DAYS 1,4,8 AND 11
     Route: 065
  2. DEXAMETHASONE [Suspect]
     Indication: MULTIPLE MYELOMA
     Dosage: 20 MG/DAY ON DAYS 1,2,4,5,8,9,11 AND 12
     Route: 065
  3. MICAFUNGIN [Suspect]
     Indication: FUNGAL INFECTION
     Dosage: UNK
     Route: 065
  4. VORICONAZOLE [Suspect]
     Indication: FUNGAL INFECTION
     Dosage: 400 MG/DAY
     Route: 042

REACTIONS (10)
  - HYPERAMMONAEMIA [None]
  - HYPERCALCAEMIA [None]
  - RENAL FAILURE ACUTE [None]
  - DEATH [None]
  - ZYGOMYCOSIS [None]
  - DEPRESSED LEVEL OF CONSCIOUSNESS [None]
  - TUMOUR LYSIS SYNDROME [None]
  - PULMONARY MASS [None]
  - BLOOD GLUCOSE INCREASED [None]
  - BLOOD POTASSIUM INCREASED [None]
